FAERS Safety Report 21709780 (Version 1)
Quarter: 2022Q4

REPORT INFORMATION
  Report Type: Spontaneous
  Country: BE (occurrence: BE)
  Receive Date: 20221210
  Receipt Date: 20221210
  Transmission Date: 20230112
  Serious: Yes (Disabling)
  Sender: FDA-Public Use
  Company Number: BE-AMGEN-BELSP2022208188

PATIENT
  Sex: Female

DRUGS (3)
  1. PROLIA [Suspect]
     Active Substance: DENOSUMAB
     Indication: Product used for unknown indication
     Dosage: 60 MILLIGRAM/ML, Q6MO
     Route: 058
     Dates: start: 20210202
  2. CALCIUM [Concomitant]
     Active Substance: CALCIUM
  3. VITAMIN D [Concomitant]
     Active Substance: VITAMIN D NOS
     Dosage: AMPULLE

REACTIONS (10)
  - Gait disturbance [Unknown]
  - Loose tooth [Unknown]
  - Urinary incontinence [Unknown]
  - Bone pain [Unknown]
  - Pain in extremity [Unknown]
  - Pain in extremity [Unknown]
  - Pubic pain [Unknown]
  - Facial pain [Unknown]
  - Arthralgia [Unknown]
  - Ankle fracture [Unknown]
